FAERS Safety Report 11843978 (Version 4)
Quarter: 2016Q2

REPORT INFORMATION
  Report Type: Spontaneous
  Country: JP (occurrence: JP)
  Receive Date: 20151217
  Receipt Date: 20160511
  Transmission Date: 20160815
  Serious: Yes (Death, Hospitalization, Other)
  Sender: FDA-Public Use
  Company Number: PHHY2013JP172193

PATIENT
  Age: 77 Year
  Sex: Male
  Weight: 61 kg

DRUGS (8)
  1. SPRYCEL [Concomitant]
     Active Substance: DASATINIB
     Indication: DIABETES MELLITUS
     Dosage: 100 MG, UNK
     Route: 048
     Dates: start: 20130121, end: 20130125
  2. TASIGNA [Suspect]
     Active Substance: NILOTINIB
     Indication: CHRONIC MYELOID LEUKAEMIA
     Dosage: 800 MG, QD
     Route: 048
     Dates: start: 20130125, end: 20130129
  3. ZYLORIC [Concomitant]
     Active Substance: ALLOPURINOL
     Indication: HYPERURICAEMIA
     Dosage: 200 MG, BID
     Route: 048
     Dates: start: 20111108
  4. KREMEZIN [Concomitant]
     Active Substance: ACTIVATED CHARCOAL
     Indication: RENAL DISORDER
     Dosage: 2 G, BID
     Route: 048
     Dates: start: 20120718
  5. ELTROMBOPAG [Suspect]
     Active Substance: ELTROMBOPAG
     Indication: IMMUNE THROMBOCYTOPENIC PURPURA
     Dosage: 12.5 MG, QD
     Route: 048
     Dates: start: 201105
  6. NU-LOTAN [Concomitant]
     Active Substance: LOSARTAN POTASSIUM
     Indication: HYPERTENSION
     Dosage: 50 MG, QD
     Route: 048
     Dates: start: 20110921
  7. VICTOZA [Concomitant]
     Active Substance: LIRAGLUTIDE
     Indication: DIABETES MELLITUS
     Dosage: 0.6 MG, QD
     Route: 058
     Dates: start: 20100208
  8. ELTROMBOPAG [Suspect]
     Active Substance: ELTROMBOPAG
     Dosage: 25 MG, QD
     Route: 048
     Dates: start: 20110520, end: 20130110

REACTIONS (12)
  - Headache [Fatal]
  - Mesenteric haematoma [Unknown]
  - Anaemia [Recovering/Resolving]
  - Granulocytes abnormal [Unknown]
  - Abdominal pain [Recovered/Resolved]
  - Chronic myeloid leukaemia [Not Recovered/Not Resolved]
  - Hemiparesis [Fatal]
  - Brain herniation [Fatal]
  - White blood cell count increased [Unknown]
  - Subdural haematoma [Fatal]
  - Disease progression [Fatal]
  - Hepatosplenomegaly [Unknown]

NARRATIVE: CASE EVENT DATE: 201205
